FAERS Safety Report 11222127 (Version 1)
Quarter: 2015Q2

REPORT INFORMATION
  Report Type: Report from Study
  Country: MX (occurrence: MX)
  Receive Date: 20150626
  Receipt Date: 20150626
  Transmission Date: 20150821
  Serious: Yes (Hospitalization, Other)
  Sender: FDA-Public Use
  Company Number: PHHY2015MX071252

PATIENT
  Sex: Male

DRUGS (2)
  1. SEEBRI BREEZHALER [Suspect]
     Active Substance: GLYCOPYRROLATE
     Indication: CHRONIC OBSTRUCTIVE PULMONARY DISEASE
     Dosage: 1 DF, UNK (START: A YEAR AGO APPROXIMATELY)
     Route: 065
  2. ONBREZ BREEZHALER [Suspect]
     Active Substance: INDACATEROL
     Indication: CHRONIC OBSTRUCTIVE PULMONARY DISEASE
     Dosage: 300 UG, UNK (START: A YEAR AGO APPROXIMATELY)
     Route: 065

REACTIONS (6)
  - Lung disorder [Unknown]
  - Fatigue [Unknown]
  - Dyspnoea [Unknown]
  - Pneumothorax [Unknown]
  - Hypoxia [Unknown]
  - Condition aggravated [Unknown]
